FAERS Safety Report 16171928 (Version 1)
Quarter: 2019Q2

REPORT INFORMATION
  Report Type: Spontaneous
  Country: IT (occurrence: IT)
  Receive Date: 20190409
  Receipt Date: 20190409
  Transmission Date: 20190711
  Serious: Yes (Other)
  Sender: FDA-Public Use
  Company Number: IT-AUROBINDO-AUR-APL-2019-017919

PATIENT

DRUGS (4)
  1. RANITIDINE. [Suspect]
     Active Substance: RANITIDINE
     Indication: LUNG NEOPLASM MALIGNANT
     Dosage: 100 MILLIGRAM, CYCLICAL
     Route: 042
     Dates: start: 20190319, end: 20190319
  2. ETOPOSIDE. [Suspect]
     Active Substance: ETOPOSIDE
     Indication: LUNG NEOPLASM MALIGNANT
     Dosage: 160 MILLIGRAM, CYCLICAL
     Route: 042
     Dates: start: 20190319, end: 20190319
  3. ONDANSETRON SOLUTION FOR INJECTION OR INFUSION [Suspect]
     Active Substance: ONDANSETRON
     Indication: LUNG NEOPLASM MALIGNANT
     Dosage: 8 MILLIGRAM, CYCLICAL
     Route: 042
     Dates: start: 20190319, end: 20190319
  4. DEXAMETHASONE. [Suspect]
     Active Substance: DEXAMETHASONE
     Indication: LUNG NEOPLASM MALIGNANT
     Dosage: 4 MILLIGRAM, CYCLICAL
     Route: 042
     Dates: start: 20190319, end: 20190319

REACTIONS (1)
  - Dysentery [Recovered/Resolved]

NARRATIVE: CASE EVENT DATE: 20190319
